FAERS Safety Report 13831032 (Version 1)
Quarter: 2017Q3

REPORT INFORMATION
  Report Type: Spontaneous
  Country: IE (occurrence: IE)
  Receive Date: 20170803
  Receipt Date: 20170803
  Transmission Date: 20171127
  Serious: Yes (Hospitalization)
  Sender: FDA-Public Use
  Company Number: IE-SA-2017SA134684

PATIENT
  Age: 69 Year
  Sex: Female

DRUGS (7)
  1. PALBOCICLIB [Suspect]
     Active Substance: PALBOCICLIB
     Indication: BREAST CANCER METASTATIC
     Route: 048
     Dates: end: 20170615
  2. SEVREDOL [Concomitant]
     Active Substance: MORPHINE
     Route: 065
  3. MAGNESIUM SALICYLATE [Concomitant]
     Active Substance: MAGNESIUM SALICYLATE
     Route: 065
  4. INNOHEP [Concomitant]
     Active Substance: TINZAPARIN SODIUM
  5. LYRICA [Concomitant]
     Active Substance: PREGABALIN
     Route: 065
  6. DESUNIN [Concomitant]
     Active Substance: CHOLECALCIFEROL
  7. CLEXANE [Suspect]
     Active Substance: ENOXAPARIN SODIUM
     Indication: SUBCLAVIAN VEIN THROMBOSIS
     Route: 065

REACTIONS (12)
  - Haemorrhage intracranial [Recovering/Resolving]
  - Pneumocephalus [Recovering/Resolving]
  - Brain contusion [Recovering/Resolving]
  - Head injury [Recovering/Resolving]
  - Vomiting [Recovering/Resolving]
  - Headache [Recovering/Resolving]
  - Skull fractured base [Recovering/Resolving]
  - Post-traumatic amnestic disorder [Recovering/Resolving]
  - Nausea [Recovered/Resolved]
  - Fall [Recovering/Resolving]
  - Loss of consciousness [Recovering/Resolving]
  - Subdural haematoma [Recovering/Resolving]

NARRATIVE: CASE EVENT DATE: 20170618
